FAERS Safety Report 19169895 (Version 1)
Quarter: 2021Q2

REPORT INFORMATION
  Report Type: Report from Study
  Country: US (occurrence: US)
  Receive Date: 20210422
  Receipt Date: 20210422
  Transmission Date: 20210717
  Serious: No
  Sender: FDA-Public Use
  Company Number: US-UCBSA-2021005576

PATIENT
  Sex: Male

DRUGS (1)
  1. ROTIGOTINE [Suspect]
     Active Substance: ROTIGOTINE
     Indication: RESTLESS LEGS SYNDROME
     Dosage: 3 MILLIGRAM, ONCE DAILY (QD)

REACTIONS (4)
  - Overdose [Unknown]
  - Product adhesion issue [Unknown]
  - Application site pruritus [Not Recovered/Not Resolved]
  - Scratch [Not Recovered/Not Resolved]
